FAERS Safety Report 7974797-8 (Version None)
Quarter: 2011Q4

REPORT INFORMATION
  Report Type: 
  Country: None (occurrence: None)
  Receive Date: 20111213
  Receipt Date: 20111130
  Transmission Date: 20120403
  Serious: Yes (Other)
  Sender: FDA-Public Use
  Company Number: PL-ROCHE-1009776

PATIENT
  Sex: Male

DRUGS (2)
  1. RANIBIZUMAB [Suspect]
     Indication: AGE-RELATED MACULAR DEGENERATION
     Route: 050
     Dates: start: 20080101
  2. BEVACIZUMAB [Suspect]
     Indication: AGE-RELATED MACULAR DEGENERATION

REACTIONS (4)
  - DETACHMENT OF RETINAL PIGMENT EPITHELIUM [None]
  - CHOROIDAL NEOVASCULARISATION [None]
  - RETINAL HAEMORRHAGE [None]
  - RETINAL PIGMENT EPITHELIAL TEAR [None]
